FAERS Safety Report 5587469-4 (Version None)
Quarter: 2007Q4

REPORT INFORMATION
  Report Type: 
  Country: None (occurrence: None)
  Receive Date: 20071205
  Receipt Date: 20070907
  Transmission Date: 20080405
  Serious: Yes (Other)
  Sender: FDA-Public Use
  Company Number: HQWYE085310SEP07

PATIENT
  Sex: Female
  Weight: 83.99 kg

DRUGS (2)
  1. EFFEXOR XR [Suspect]
     Indication: DEPRESSION
     Dosage: 112.5 MG 1X PER 1 DAY, ORAL ; 150 MG 1X PER 1 DAY, ORAL
     Route: 048
     Dates: start: 20060101, end: 20070905
  2. EFFEXOR XR [Suspect]
     Indication: DEPRESSION
     Dosage: 112.5 MG 1X PER 1 DAY, ORAL ; 150 MG 1X PER 1 DAY, ORAL
     Route: 048
     Dates: start: 20070906

REACTIONS (13)
  - ANGER [None]
  - CONDITION AGGRAVATED [None]
  - DEPRESSION SUICIDAL [None]
  - DRUG INEFFECTIVE [None]
  - ELECTRIC SHOCK [None]
  - HEADACHE [None]
  - HYPERHIDROSIS [None]
  - INSOMNIA [None]
  - PARAESTHESIA [None]
  - SUICIDAL IDEATION [None]
  - VISION BLURRED [None]
  - VISUAL DISTURBANCE [None]
  - WEIGHT INCREASED [None]
